FAERS Safety Report 7492815-0 (Version None)
Quarter: 2011Q2

REPORT INFORMATION
  Report Type: 
  Country: None (occurrence: None)
  Receive Date: 20110512
  Receipt Date: 20110506
  Transmission Date: 20111010
  Serious: Yes (Hospitalization, Other)
  Sender: FDA-Public Use
  Company Number: 2010SP012617

PATIENT
  Age: 46 Year
  Sex: Female
  Weight: 60.782 kg

DRUGS (2)
  1. TOPIRAMATE [Concomitant]
  2. NUVARING [Suspect]
     Indication: CONTRACEPTION
     Dates: start: 20030301, end: 20050501

REACTIONS (26)
  - OVARIAN CYST [None]
  - ABDOMINAL DISCOMFORT [None]
  - ATELECTASIS [None]
  - WEIGHT INCREASED [None]
  - INCORRECT DOSE ADMINISTERED [None]
  - ENDOMETRIAL HYPERPLASIA [None]
  - LUNG INFILTRATION [None]
  - ADENOMYOSIS [None]
  - DEEP VEIN THROMBOSIS [None]
  - MUSCLE SPASMS [None]
  - FIBRIN D DIMER INCREASED [None]
  - PANCREATIC MASS [None]
  - LYMPHADENOPATHY [None]
  - PULMONARY MASS [None]
  - METASTASES TO LUNG [None]
  - COUGH [None]
  - ABDOMINAL PAIN [None]
  - DIVERTICULUM [None]
  - HAEMORRHOIDS [None]
  - IRRITABLE BOWEL SYNDROME [None]
  - HIATUS HERNIA [None]
  - PULMONARY EMBOLISM [None]
  - PULMONARY INFARCTION [None]
  - ANTINUCLEAR ANTIBODY POSITIVE [None]
  - ANAEMIA [None]
  - THROMBOPHLEBITIS [None]
